FAERS Safety Report 13271665 (Version 1)
Quarter: 2017Q1

REPORT INFORMATION
  Report Type: Spontaneous
  Country: DE (occurrence: DE)
  Receive Date: 20170227
  Receipt Date: 20170227
  Transmission Date: 20170428
  Serious: Yes (Other)
  Sender: FDA-Public Use
  Company Number: DE-ABBVIE-17K-062-1886441-00

PATIENT
  Sex: Male
  Weight: 3.3 kg

DRUGS (4)
  1. SALOFALK [Suspect]
     Active Substance: MESALAMINE
     Indication: MATERNAL EXPOSURE TIMING UNSPECIFIED
     Route: 064
  2. SALOFALK [Suspect]
     Active Substance: MESALAMINE
     Route: 063
  3. HUMIRA [Suspect]
     Active Substance: ADALIMUMAB
     Indication: MATERNAL EXPOSURE TIMING UNSPECIFIED
     Route: 064
  4. HUMIRA [Suspect]
     Active Substance: ADALIMUMAB
     Route: 063

REACTIONS (6)
  - Exposure during breast feeding [Unknown]
  - Foetal exposure during pregnancy [Unknown]
  - Skin texture abnormal [Unknown]
  - Ecchymosis [Unknown]
  - Petechiae [Unknown]
  - Vasculitic rash [Unknown]

NARRATIVE: CASE EVENT DATE: 2016
